FAERS Safety Report 5719807-3 (Version None)
Quarter: 2008Q2

REPORT INFORMATION
  Report Type: 
  Country: None (occurrence: None)
  Receive Date: 20080425
  Receipt Date: 20080425
  Transmission Date: 20081010
  Serious: Yes (Hospitalization)
  Sender: FDA-Public Use
  Company Number: None

PATIENT
  Age: 71 Year
  Sex: Male
  Weight: 165.56 kg

DRUGS (3)
  1. ENOXAPARIN SODIUM [Suspect]
     Dosage: 150 MG BID SQ
     Route: 058
     Dates: start: 20080306, end: 20080310
  2. WARFARIN SODIUM [Suspect]
     Indication: AORTIC VALVE REPLACEMENT
     Dosage: 5 MG EVERY DAY PO
     Route: 048
     Dates: start: 20080306, end: 20080310
  3. WARFARIN SODIUM [Suspect]
     Indication: CEREBROVASCULAR ACCIDENT
     Dosage: 5 MG EVERY DAY PO
     Route: 048
     Dates: start: 20080306, end: 20080310

REACTIONS (6)
  - CEREBROVASCULAR ACCIDENT [None]
  - HAEMORRHAGE [None]
  - INJECTION SITE HAEMORRHAGE [None]
  - INTERNATIONAL NORMALISED RATIO DECREASED [None]
  - NO THERAPEUTIC RESPONSE [None]
  - RETROPERITONEAL HAEMATOMA [None]
